FAERS Safety Report 19770823 (Version 4)
Quarter: 2021Q3

REPORT INFORMATION
  Report Type: Spontaneous
  Country: DE (occurrence: DE)
  Receive Date: 20210901
  Receipt Date: 20210915
  Transmission Date: 20211014
  Serious: Yes (Other)
  Sender: FDA-Public Use
  Company Number: DE-MYLANLABS-2021M1056504

PATIENT
  Age: 33 Year
  Sex: Female

DRUGS (11)
  1. OXAZEPAM. [Interacting]
     Active Substance: OXAZEPAM
     Indication: PRODUCT USED FOR UNKNOWN INDICATION
     Dosage: UNK
     Route: 065
  2. ESCITALOPRAM [Interacting]
     Active Substance: ESCITALOPRAM OXALATE
     Indication: PRODUCT USED FOR UNKNOWN INDICATION
     Dosage: UNK
     Route: 065
  3. LORAZEPAM. [Suspect]
     Active Substance: LORAZEPAM
     Indication: PRODUCT USED FOR UNKNOWN INDICATION
     Dosage: UNK
     Route: 065
  4. NORDAZEPAM [Interacting]
     Active Substance: NORDAZEPAM
     Indication: PRODUCT USED FOR UNKNOWN INDICATION
     Dosage: UNK
     Route: 065
  5. DIAZEPAM. [Interacting]
     Active Substance: DIAZEPAM
     Indication: PRODUCT USED FOR UNKNOWN INDICATION
     Dosage: UNK
     Route: 065
  6. VENLAFAXINE [Interacting]
     Active Substance: VENLAFAXINE HYDROCHLORIDE
     Indication: PRODUCT USED FOR UNKNOWN INDICATION
     Dosage: UNK
     Route: 065
  7. LORMETAZEPAM [Interacting]
     Active Substance: LORMETAZEPAM
     Indication: PRODUCT USED FOR UNKNOWN INDICATION
     Dosage: UNK
     Route: 065
  8. BUPRENORPHINE. [Interacting]
     Active Substance: BUPRENORPHINE
     Indication: PRODUCT USED FOR UNKNOWN INDICATION
     Dosage: UNK
     Route: 065
  9. TRAMADOL. [Interacting]
     Active Substance: TRAMADOL
     Indication: PRODUCT USED FOR UNKNOWN INDICATION
     Dosage: UNK
     Route: 065
  10. TEMAZEPAM. [Interacting]
     Active Substance: TEMAZEPAM
     Indication: PRODUCT USED FOR UNKNOWN INDICATION
     Dosage: UNK
     Route: 065
  11. TRAZODONE [Suspect]
     Active Substance: TRAZODONE HYDROCHLORIDE
     Indication: PRODUCT USED FOR UNKNOWN INDICATION
     Dosage: UNK

REACTIONS (10)
  - Substance abuse [Unknown]
  - Drug dependence [Unknown]
  - Emotional disorder [Unknown]
  - Dysarthria [Unknown]
  - Bradykinesia [Unknown]
  - Drug abuse [Unknown]
  - Bradyphrenia [Unknown]
  - Victim of sexual abuse [Unknown]
  - Drug interaction [Unknown]
  - Coordination abnormal [Unknown]
